FAERS Safety Report 8263943-7 (Version None)
Quarter: 2012Q2

REPORT INFORMATION
  Report Type: 
  Country: None (occurrence: None)
  Receive Date: 20120406
  Receipt Date: 20120403
  Transmission Date: 20120825
  Serious: Yes (Hospitalization)
  Sender: FDA-Public Use
  Company Number: US-BIOGENIDEC-2012BI010979

PATIENT
  Sex: Female

DRUGS (2)
  1. TYSABRI [Suspect]
     Indication: MULTIPLE SCLEROSIS
     Route: 042
     Dates: start: 20080909, end: 20110209
  2. TYSABRI [Suspect]
     Route: 042
     Dates: start: 20110829

REACTIONS (2)
  - BLOOD THYROID STIMULATING HORMONE DECREASED [None]
  - FALL [None]
